FAERS Safety Report 4400527-2 (Version None)
Quarter: 2004Q3

REPORT INFORMATION
  Report Type: 
  Country: None (occurrence: None)
  Receive Date: 20040716
  Receipt Date: 20040716
  Transmission Date: 20050211
  Serious: Yes (Hospitalization, Other)
  Sender: FDA-Public Use
  Company Number: None

PATIENT
  Age: 69 Year
  Sex: Male

DRUGS (1)
  1. OMNIPAQUE 350 [Suspect]
     Indication: COLON CANCER METASTATIC
     Dosage: ONCE, IV, 180CC
     Route: 042
     Dates: start: 20040427

REACTIONS (8)
  - CARDIO-RESPIRATORY ARREST [None]
  - COMA [None]
  - CONTRAST MEDIA REACTION [None]
  - CONVULSION [None]
  - ERYTHEMA [None]
  - HYPOVENTILATION [None]
  - TREMOR [None]
  - WHEEZING [None]
